FAERS Safety Report 15650584 (Version 3)
Quarter: 2019Q1

REPORT INFORMATION
  Report Type: Spontaneous
  Country: JP (occurrence: JP)
  Receive Date: 20181123
  Receipt Date: 20190116
  Transmission Date: 20190417
  Serious: Yes (Other)
  Sender: FDA-Public Use
  Company Number: JP-BAUSCH-BL-2018-032632

PATIENT
  Age: 52 Year
  Sex: Male

DRUGS (7)
  1. LUCENTIS [Suspect]
     Active Substance: RANIBIZUMAB
     Indication: CHOROIDAL NEOVASCULARISATION
  2. LUCENTIS [Suspect]
     Active Substance: RANIBIZUMAB
     Indication: AGE-RELATED MACULAR DEGENERATION
     Dosage: INTRAVITREAL INJECTION
     Route: 050
     Dates: start: 20170426, end: 20170426
  3. AFLIBERCEPT [Concomitant]
     Active Substance: AFLIBERCEPT
     Indication: PRODUCT USED FOR UNKNOWN INDICATION
     Dosage: INTRAVITREAL
     Route: 050
  4. VISUDYNE [Suspect]
     Active Substance: VERTEPORFIN
     Indication: POLYPOIDAL CHOROIDAL VASCULOPATHY
     Route: 042
     Dates: start: 20170502, end: 20170502
  5. VISUDYNE [Suspect]
     Active Substance: VERTEPORFIN
     Indication: AGE-RELATED MACULAR DEGENERATION
  6. LUCENTIS [Suspect]
     Active Substance: RANIBIZUMAB
     Indication: POLYPOIDAL CHOROIDAL VASCULOPATHY
     Dosage: INTRAVITREAL INJECTION
     Route: 050
     Dates: start: 20170209
  7. VISUDYNE [Suspect]
     Active Substance: VERTEPORFIN
     Indication: CHOROIDAL NEOVASCULARISATION

REACTIONS (2)
  - Choroidal neovascularisation [Not Recovered/Not Resolved]
  - Disease progression [Not Recovered/Not Resolved]

NARRATIVE: CASE EVENT DATE: 20170824
